FAERS Safety Report 9583715 (Version 1)
Quarter: 2013Q4

REPORT INFORMATION
  Report Type: Spontaneous
  Country: US (occurrence: US)
  Receive Date: 20131002
  Receipt Date: 20131002
  Transmission Date: 20140711
  Serious: No
  Sender: FDA-Public Use
  Company Number: US-AMGEN-USASP2013048702

PATIENT
  Age: 36 Year
  Sex: Female

DRUGS (8)
  1. ENBREL [Suspect]
     Indication: PRODUCT USED FOR UNKNOWN INDICATION
     Dosage: 50 MG, QWK
     Route: 058
  2. ZOLOFT [Concomitant]
     Dosage: 100 MG, UNK
  3. ZYRTEC [Concomitant]
     Dosage: 5 MG, UNK, CHW
  4. TRAZODONE [Concomitant]
     Dosage: 100 MG, UNK
  5. NABUMETONE [Concomitant]
     Dosage: 750 MG, UNK
  6. METHOTREXATE [Concomitant]
     Dosage: 1 G, UNK
  7. FOLIC ACID [Concomitant]
     Dosage: 5 MG/ML, UNK
  8. CYCLOBENZAPRINE [Concomitant]
     Dosage: 7.5 MG, UNK

REACTIONS (3)
  - Injection site erythema [Unknown]
  - Injection site swelling [Unknown]
  - Injection site pruritus [Unknown]
